FAERS Safety Report 7221387-0 (Version None)
Quarter: 2011Q1

REPORT INFORMATION
  Report Type: 
  Country: None (occurrence: None)
  Receive Date: 20110112
  Receipt Date: 20110107
  Transmission Date: 20110831
  Serious: Yes (Death, Hospitalization)
  Sender: FDA-Public Use
  Company Number: IE-MEDIMMUNE-MEDI-0011223

PATIENT
  Sex: Female

DRUGS (13)
  1. FUROSEMIDE [Concomitant]
     Route: 048
  2. BACLOFEN [Concomitant]
     Route: 048
  3. ABIDEL [Concomitant]
  4. CODEINE PHOSPHATE [Concomitant]
  5. VALPROATE SODIUM [Concomitant]
     Route: 048
     Dates: end: 20100412
  6. BUDESONIDE [Concomitant]
  7. ALBUTEROL [Concomitant]
  8. KAPSOVIT [Concomitant]
     Route: 048
  9. GAVISCON [Concomitant]
  10. OMEPRAZOLE [Concomitant]
     Route: 048
  11. AMOXICILLIN SODIUM [Concomitant]
     Route: 048
  12. SYNAGIS [Suspect]
     Route: 030
     Dates: start: 20091007, end: 20100201
  13. FERROUS SULFATE [Concomitant]
     Route: 048

REACTIONS (5)
  - FAILURE TO THRIVE [None]
  - CEREBRAL PALSY [None]
  - CHRONIC RESPIRATORY FAILURE [None]
  - CONVULSION [None]
  - DEVELOPMENTAL DELAY [None]
